FAERS Safety Report 5317325-8 (Version None)
Quarter: 2007Q2

REPORT INFORMATION
  Report Type: 
  Country: None (occurrence: None)
  Receive Date: 20070504
  Receipt Date: 20070426
  Transmission Date: 20071010
  Serious: Yes (Hospitalization)
  Sender: FDA-Public Use
  Company Number: FR-PFIZER INC-2007033906

PATIENT
  Sex: Female

DRUGS (1)
  1. TRIFLUCAN [Suspect]
     Route: 048
     Dates: start: 20061215, end: 20061222

REACTIONS (2)
  - DERMATITIS BULLOUS [None]
  - PEMPHIGOID [None]
